FAERS Safety Report 6701613-4 (Version None)
Quarter: 2010Q2

REPORT INFORMATION
  Report Type: 
  Country: None (occurrence: None)
  Receive Date: 20100429
  Receipt Date: 20100427
  Transmission Date: 20101027
  Serious: Yes (Hospitalization)
  Sender: FDA-Public Use
  Company Number: FR-SANOFI-AVENTIS-2010SA024163

PATIENT
  Age: 73 Year
  Sex: Male

DRUGS (7)
  1. ARAVA [Suspect]
     Indication: RHEUMATOID ARTHRITIS
     Route: 048
     Dates: start: 20100129, end: 20100203
  2. PARACETAMOL [Suspect]
     Route: 048
     Dates: start: 20050101, end: 20100203
  3. ACETAMINOPHEN AND CODEINE PHOSPHATE [Suspect]
     Route: 048
     Dates: start: 20100129, end: 20100203
  4. FOSAMAX [Suspect]
     Route: 048
     Dates: start: 20050101, end: 20100201
  5. CORTANCYL [Concomitant]
     Route: 048
     Dates: start: 20050101
  6. OROCAL D(3) [Concomitant]
     Route: 048
     Dates: start: 20050101
  7. NISISCO [Concomitant]
     Route: 048
     Dates: start: 20050101

REACTIONS (1)
  - CYTOLYTIC HEPATITIS [None]
